FAERS Safety Report 20171265 (Version 1)
Quarter: 2021Q4

REPORT INFORMATION
  Report Type: Spontaneous
  Country: VN (occurrence: VN)
  Receive Date: 20211210
  Receipt Date: 20211210
  Transmission Date: 20220303
  Serious: Yes (Other)
  Sender: FDA-Public Use
  Company Number: VN-PURDUE-USA-2021-0289841

PATIENT
  Age: 48 Year
  Sex: Female
  Weight: 66.7 kg

DRUGS (2)
  1. LIDOCAINE [Suspect]
     Active Substance: LIDOCAINE
     Indication: Local anaesthesia
     Dosage: 10 ML, SINGLE [2%]
     Route: 042
  2. SALINE                             /00075401/ [Concomitant]
     Indication: Product used for unknown indication
     Dosage: 500 ML, UNK  [0.9%]
     Route: 042

REACTIONS (4)
  - Local anaesthetic systemic toxicity [Recovered/Resolved]
  - Hypoxia [Recovered/Resolved]
  - Bradycardia [Recovered/Resolved]
  - Hypotension [Recovered/Resolved]
